FAERS Safety Report 9126990 (Version 1)
Quarter: 2013Q1

REPORT INFORMATION
  Report Type: Spontaneous
  Country: US (occurrence: US)
  Receive Date: 20130228
  Receipt Date: 20130228
  Transmission Date: 20140127
  Serious: Yes (Other)
  Sender: FDA-Public Use
  Company Number: PHEH2013US004394

PATIENT
  Sex: Female

DRUGS (11)
  1. TASIGNA [Suspect]
     Indication: LEUKAEMIA
     Dosage: 200 MG, 4 TIMES A DAY
  2. METFORMIN [Concomitant]
  3. FENOFIBRATE [Concomitant]
  4. SYNTHROID [Concomitant]
  5. SIMVASTATIN [Concomitant]
  6. LAMOTRIGIN [Concomitant]
  7. VITAMIN E [Concomitant]
  8. VITAMIN D [Concomitant]
  9. OXYCODONE [Concomitant]
  10. FISH OIL [Concomitant]
  11. VICTOZA [Concomitant]

REACTIONS (4)
  - Lung neoplasm malignant [Unknown]
  - Second primary malignancy [Unknown]
  - Speech disorder [Unknown]
  - Cough [Unknown]
